FAERS Safety Report 20381688 (Version 2)
Quarter: 2022Q1

REPORT INFORMATION
  Report Type: Spontaneous
  Country: US (occurrence: None)
  Receive Date: 20220127
  Receipt Date: 20220318
  Transmission Date: 20220423
  Serious: No
  Sender: FDA-Public Use
  Company Number: 2022A012996

PATIENT
  Age: 24166 Day
  Sex: Female
  Weight: 122.5 kg

DRUGS (3)
  1. BUDESONIDE\FORMOTEROL\GLYCOPYRRONIUM [Suspect]
     Active Substance: BUDESONIDE\FORMOTEROL\GLYCOPYRRONIUM
     Indication: Chronic obstructive pulmonary disease
     Dosage: BREZTRI AEROSPHERE 160/9/4.8MCG 2 PUFFS TWICE DAILY
     Route: 055
  2. ALBUTEROL [Concomitant]
     Active Substance: ALBUTEROL
  3. MUCINEX [Concomitant]
     Active Substance: GUAIFENESIN

REACTIONS (8)
  - Secretion discharge [Not Recovered/Not Resolved]
  - Candida infection [Not Recovered/Not Resolved]
  - Drug dose omission by device [Not Recovered/Not Resolved]
  - Device use issue [Unknown]
  - Wrong technique in device usage process [Unknown]
  - Product use issue [Not Recovered/Not Resolved]
  - Device delivery system issue [Unknown]
  - Device malfunction [Unknown]

NARRATIVE: CASE EVENT DATE: 20211217
